FAERS Safety Report 4504141-X (Version None)
Quarter: 2004Q4

REPORT INFORMATION
  Report Type: 
  Country: None (occurrence: None)
  Receive Date: 20041115
  Receipt Date: 20041104
  Transmission Date: 20050328
  Serious: Yes (Hospitalization)
  Sender: FDA-Public Use
  Company Number: AZAUS200400124

PATIENT
  Age: 76 Year
  Sex: Female
  Weight: 78.9259 kg

DRUGS (3)
  1. VIDAZA [Suspect]
     Indication: MYELODYSPLASTIC SYNDROME
     Dosage: 75 MG/M2 (138 MG, DAILY X 7 DAYS), SUBCUTANEOUS
     Route: 058
     Dates: start: 20040930, end: 20041006
  2. PROCRIT [Concomitant]
  3. NEULASTA [Concomitant]

REACTIONS (7)
  - BALANCE DISORDER [None]
  - EAR PAIN [None]
  - FALL [None]
  - FATIGUE [None]
  - FEBRILE NEUTROPENIA [None]
  - PANCYTOPENIA [None]
  - URINE ODOUR ABNORMAL [None]
